FAERS Safety Report 11885090 (Version 1)
Quarter: 2015Q4

REPORT INFORMATION
  Report Type: Spontaneous
  Country: US (occurrence: None)
  Receive Date: 20151231
  Receipt Date: 20151231
  Transmission Date: 20160305
  Serious: No
  Sender: FDA-Public Use
  Company Number: None

PATIENT
  Age: 72 Year
  Sex: Female
  Weight: 81.65 kg

DRUGS (8)
  1. SYNTHROID [Concomitant]
     Active Substance: LEVOTHYROXINE SODIUM
  2. XARELTO [Suspect]
     Active Substance: RIVAROXABAN
     Indication: ATRIAL FIBRILLATION
     Dosage: 1 WITH EVENING MEAL
     Route: 048
  3. CARTIA XT [Concomitant]
     Active Substance: DILTIAZEM HYDROCHLORIDE
  4. WOMEN^S OVER 50 ONE A DAY VITAMIN [Concomitant]
  5. CARTIA XT [Suspect]
     Active Substance: DILTIAZEM HYDROCHLORIDE
     Dosage: 1 PILL
  6. IBUPROHEN [Concomitant]
  7. XARELTO [Concomitant]
     Active Substance: RIVAROXABAN
  8. C-PAP MACHINE [Concomitant]
     Active Substance: DEVICE

REACTIONS (1)
  - Alopecia [None]
